FAERS Safety Report 7540907-X (Version None)
Quarter: 2011Q2

REPORT INFORMATION
  Report Type: 
  Country: None (occurrence: None)
  Receive Date: 20110610
  Receipt Date: 20110601
  Transmission Date: 20111010
  Serious: Yes (Disabling)
  Sender: FDA-Public Use
  Company Number: SE-ASTRAZENECA-2011SE34092

PATIENT
  Sex: Female

DRUGS (1)
  1. BUPIVACAINE HCL [Suspect]
     Indication: HYSTERECTOMY
     Route: 037
     Dates: start: 20090129

REACTIONS (4)
  - ABDOMINAL DISTENSION [None]
  - URINARY INCONTINENCE [None]
  - PERONEAL NERVE PALSY [None]
  - HYPOAESTHESIA [None]
